FAERS Safety Report 23927171 (Version 1)
Quarter: 2024Q2

REPORT INFORMATION
  Report Type: Spontaneous
  Country: US (occurrence: US)
  Receive Date: 20240531
  Receipt Date: 20240531
  Transmission Date: 20240716
  Serious: No
  Sender: FDA-Public Use
  Company Number: US-RADIUS HEALTH, INC.-2023US005758

PATIENT
  Sex: Female
  Weight: 61.224 kg

DRUGS (1)
  1. TYMLOS [Suspect]
     Active Substance: ABALOPARATIDE
     Indication: Osteoporosis
     Dosage: 80 MCG, DAILY
     Route: 058
     Dates: start: 202308

REACTIONS (9)
  - Depressed mood [Unknown]
  - Decreased activity [Unknown]
  - Dysstasia [Unknown]
  - Exercise tolerance decreased [Unknown]
  - Waist circumference increased [Unknown]
  - Mobility decreased [Unknown]
  - Hypotonia [Unknown]
  - Fatigue [Unknown]
  - Back pain [Not Recovered/Not Resolved]
